FAERS Safety Report 20999947 (Version 2)
Quarter: 2022Q2

REPORT INFORMATION
  Report Type: Spontaneous
  Country: US (occurrence: US)
  Receive Date: 20220623
  Receipt Date: 20220627
  Transmission Date: 20220721
  Serious: Yes (Life-Threatening, Hospitalization, Other)
  Sender: FDA-Public Use
  Company Number: US-AstraZeneca-2022A229743

PATIENT
  Sex: Male

DRUGS (1)
  1. ENHERTU [Suspect]
     Active Substance: FAM-TRASTUZUMAB DERUXTECAN-NXKI
     Indication: Gastrointestinal carcinoma
     Dosage: ONCE EVERY 3 WK
     Route: 041

REACTIONS (2)
  - Febrile neutropenia [Unknown]
  - Interstitial lung disease [Unknown]
